FAERS Safety Report 24395556 (Version 3)
Quarter: 2025Q1

REPORT INFORMATION
  Report Type: Report from Study
  Country: CA (occurrence: CA)
  Receive Date: 20241004
  Receipt Date: 20250217
  Transmission Date: 20250408
  Serious: Yes (Other)
  Sender: SANDOZ
  Company Number: CA-SANDOZ-SDZ2024CA026925

PATIENT
  Sex: Female

DRUGS (5)
  1. ERELZI [Suspect]
     Active Substance: ETANERCEPT-SZZS
     Indication: Rheumatoid arthritis
     Dosage: 50MG WEEKLY;WEEKLY
     Route: 058
     Dates: start: 20240225
  2. ERELZI [Suspect]
     Active Substance: ETANERCEPT-SZZS
     Route: 058
  3. ERELZI [Suspect]
     Active Substance: ETANERCEPT-SZZS
     Route: 058
  4. ERELZI [Suspect]
     Active Substance: ETANERCEPT-SZZS
     Route: 058
  5. ERELZI [Suspect]
     Active Substance: ETANERCEPT-SZZS
     Route: 058

REACTIONS (6)
  - Pneumothorax [Unknown]
  - Pneumonia [Unknown]
  - Wheezing [Unknown]
  - COVID-19 [Unknown]
  - Diarrhoea [Unknown]
  - Off label use [Unknown]
